FAERS Safety Report 11811834 (Version 1)
Quarter: 2015Q4

REPORT INFORMATION
  Report Type: Spontaneous
  Country: US (occurrence: US)
  Receive Date: 20151208
  Receipt Date: 20151208
  Transmission Date: 20160305
  Serious: No
  Sender: FDA-Public Use
  Company Number: US-LPDUSPRD-20140792

PATIENT
  Sex: Male

DRUGS (2)
  1. DEXFERRUM [Suspect]
     Active Substance: IRON DEXTRAN
     Dosage: NOT PROVIDED
     Route: 065
     Dates: start: 201406
  2. VENOFER [Suspect]
     Active Substance: IRON SUCROSE
     Route: 065
     Dates: start: 201406

REACTIONS (1)
  - Therapeutic response decreased [Unknown]

NARRATIVE: CASE EVENT DATE: 201406
